FAERS Safety Report 15028347 (Version 1)
Quarter: 2018Q2

REPORT INFORMATION
  Report Type: Spontaneous
  Country: US (occurrence: US)
  Receive Date: 20180619
  Receipt Date: 20180619
  Transmission Date: 20180711
  Serious: Yes (Hospitalization)
  Sender: FDA-Public Use
  Company Number: US-BAYER-2018-114974

PATIENT
  Age: 72 Year
  Sex: Male

DRUGS (1)
  1. ACETYLSALICYLIC ACID({=100 MG) [Suspect]
     Active Substance: ASPIRIN

REACTIONS (3)
  - Pulmonary alveolar haemorrhage [None]
  - Labelled drug-drug interaction medication error [None]
  - Drug administration error [None]
